FAERS Safety Report 8098085-7 (Version None)
Quarter: 2012Q1

REPORT INFORMATION
  Report Type: 
  Country: None (occurrence: None)
  Receive Date: 20120128
  Receipt Date: 20110806
  Transmission Date: 20120608
  Serious: No
  Sender: FDA-Public Use
  Company Number: US-ABBOTT-11P-163-0844771-00

PATIENT
  Age: 70 Year
  Sex: Female

DRUGS (4)
  1. BUPROPION HYDROCHLORIDE [Concomitant]
     Indication: DEPRESSION
  2. ATENOLOL [Concomitant]
     Indication: TACHYCARDIA
  3. PREMARIN [Concomitant]
     Indication: PRODUCT USED FOR UNKNOWN INDICATION
  4. HUMIRA [Suspect]
     Indication: RHEUMATOID ARTHRITIS

REACTIONS (1)
  - INJECTION SITE PAIN [None]
